FAERS Safety Report 22001655 (Version 2)
Quarter: 2023Q1

REPORT INFORMATION
  Report Type: Spontaneous
  Country: PL (occurrence: PL)
  Receive Date: 20230216
  Receipt Date: 20230228
  Transmission Date: 20230418
  Serious: Yes (Other)
  Sender: FDA-Public Use
  Company Number: PL-TEVA-2023-PL-2855848

PATIENT
  Age: 13 Year
  Sex: Male

DRUGS (9)
  1. VINCRISTINE [Suspect]
     Active Substance: VINCRISTINE
     Indication: T-cell lymphoma stage III
     Dosage: 1.5 MG/M2 DAILY; ONCE DAILY, PART OF INDUCTION THERAPY (PHASE IA) IN EURO-LB 02 PROTOCOL THERAPY
     Route: 065
  2. VINCRISTINE [Suspect]
     Active Substance: VINCRISTINE
     Dosage: 30 MG/M2 DAILY; ONCE DAILY, PART OF INDUCTION THERAPY (PHASE IA) IN EURO-LB 02 PROTOCOL THERAPY
     Route: 065
  3. METHOTREXATE [Suspect]
     Active Substance: METHOTREXATE
     Indication: T-cell lymphoma stage III
     Dosage: 5 G/M2/DAY; PART OF CONSOLIDATION THERAPY IN EURO-LB 02 PROTOCOL THERAPY
     Route: 050
  4. PREDNISONE [Suspect]
     Active Substance: PREDNISONE
     Indication: T-cell lymphoma stage III
     Dosage: 60 MG/M2 DAILY; PART OF CYTOREDUCTIVE (PRE-PHASE) AND INDUCTION THERAPY (PHASE IA) IN EURO-LB 02 PRO
     Route: 065
     Dates: start: 201407
  5. ASPARAGINASE [Suspect]
     Active Substance: ASPARAGINASE
     Indication: T-cell lymphoma stage III
     Dosage: 10,000 IU/M2; PART OF INDUCTION THERAPY (PHASE IA) IN EURO-LB 02 PROTOCOL THERAPY
     Route: 065
  6. CYCLOPHOSPHAMIDE [Concomitant]
     Active Substance: CYCLOPHOSPHAMIDE
     Indication: T-cell lymphoma stage III
     Dosage: 1000 MG/M2 DAILY; ONCE DAILY, PART OF INDUCTION THERAPY (PHASE IB) IN EURO-LB 02 PROTOCOL THERAPY
     Route: 065
  7. CYTARABINE [Concomitant]
     Active Substance: CYTARABINE
     Indication: T-cell lymphoma stage III
     Dosage: 75 MG/M2 DAILY; ONCE DAILY, PART OF INDUCTION THERAPY (PHASE IB) IN EURO-LB 02 PROTOCOL THERAPY
     Route: 065
  8. MERCAPTOPURINE [Concomitant]
     Active Substance: MERCAPTOPURINE
     Indication: T-cell lymphoma stage III
     Dosage: 60 MG/M2 DAILY; ONCE DAILY, PART OF INDUCTION THERAPY (PHASE IB) IN EURO-LB 02 PROTOCOL THERAPY
     Route: 065
  9. MERCAPTOPURINE [Concomitant]
     Active Substance: MERCAPTOPURINE
     Dosage: 25 MG/M2 DAILY; ONCE DAILY, PART OF CONSOLIDATION THERAPY IN EURO-LB 02 PROTOCOL THERAPY
     Route: 065

REACTIONS (6)
  - Anaemia [Unknown]
  - Febrile neutropenia [Unknown]
  - Stomatitis [Unknown]
  - Neurotoxicity [Unknown]
  - Upper respiratory tract infection [Unknown]
  - Epilepsy [Recovered/Resolved]
